FAERS Safety Report 24155131 (Version 3)
Quarter: 2024Q3

REPORT INFORMATION
  Report Type: Report from Study
  Country: US (occurrence: US)
  Receive Date: 20240731
  Receipt Date: 20240913
  Transmission Date: 20241017
  Serious: Yes (Death, Other)
  Sender: ACADIA PHARMACEUTICALS
  Company Number: US-ACADIA PHARMACEUTICALS INC.-ACA-2024-PIM-003399

PATIENT
  Age: 82 Year
  Sex: Male

DRUGS (17)
  1. NUPLAZID [Suspect]
     Active Substance: PIMAVANSERIN TARTRATE
     Indication: Parkinson^s disease
     Dosage: 34 MILLIGRAM, QD
     Route: 048
     Dates: start: 202304, end: 20240731
  2. NUPLAZID [Suspect]
     Active Substance: PIMAVANSERIN TARTRATE
     Indication: Parkinson^s disease psychosis
  3. ELIQUIS [Concomitant]
     Active Substance: APIXABAN
  4. HYDROCHLOROTHIAZIDE [Concomitant]
     Active Substance: HYDROCHLOROTHIAZIDE
  5. MIDODRINE [Concomitant]
     Active Substance: MIDODRINE
  6. CITALOPRAM [Concomitant]
     Active Substance: CITALOPRAM\CITALOPRAM HYDROBROMIDE
  7. TYLENOL [Concomitant]
     Active Substance: ACETAMINOPHEN
  8. BACITRACIN [Concomitant]
     Active Substance: BACITRACIN
  9. MECLIZINE [Concomitant]
     Active Substance: MECLIZINE HYDROCHLORIDE
  10. ONDANSETRON [Concomitant]
     Active Substance: ONDANSETRON
  11. TRAZODONE [Concomitant]
     Active Substance: TRAZODONE HYDROCHLORIDE
  12. MIRALAX [Concomitant]
     Active Substance: POLYETHYLENE GLYCOL 3350
  13. SIMVASTATIN [Concomitant]
     Active Substance: SIMVASTATIN
  14. TIMOLOL [Concomitant]
     Active Substance: TIMOLOL
  15. TAMSULOSIN [Concomitant]
     Active Substance: TAMSULOSIN
  16. RYTARY [Concomitant]
     Active Substance: CARBIDOPA\LEVODOPA
  17. MELATONIN [Concomitant]
     Active Substance: MELATONIN

REACTIONS (3)
  - Death [Fatal]
  - Wrong technique in product usage process [Unknown]
  - Sedative therapy [Unknown]

NARRATIVE: CASE EVENT DATE: 20240731
